FAERS Safety Report 9940875 (Version 1)
Quarter: 2014Q1

REPORT INFORMATION
  Report Type: Spontaneous
  Country: SE (occurrence: SE)
  Receive Date: 20140303
  Receipt Date: 20140303
  Transmission Date: 20141002
  Serious: Yes (Life-Threatening)
  Sender: FDA-Public Use
  Company Number: SE-TEVA-465335ISR

PATIENT
  Age: 53 Year
  Sex: Male
  Weight: 93 kg

DRUGS (1)
  1. MIRTAZAPINE TEVA [Suspect]

REACTIONS (21)
  - Heart rate increased [Recovered/Resolved]
  - Pyrexia [Recovered/Resolved]
  - Asthenia [Recovered/Resolved]
  - Hyperhidrosis [Recovered/Resolved]
  - Pyrexia [Recovered/Resolved]
  - Oral herpes [Recovered/Resolved]
  - Thirst [Recovered/Resolved]
  - Dysuria [Recovered/Resolved]
  - Balance disorder [Recovered/Resolved]
  - Blepharospasm [Recovered/Resolved]
  - Hypoaesthesia [Recovered/Resolved]
  - Muscle rigidity [Recovered/Resolved]
  - Suspiciousness [Recovered/Resolved]
  - Irritability [Recovered/Resolved]
  - Mood swings [Recovered/Resolved]
  - Confusional state [Recovered/Resolved]
  - Panic attack [Recovered/Resolved]
  - Aggression [Recovered/Resolved]
  - Anxiety [Recovered/Resolved]
  - Alcohol interaction [Recovered/Resolved]
  - Memory impairment [Recovered/Resolved]
